FAERS Safety Report 10068601 (Version 1)
Quarter: 2014Q2

REPORT INFORMATION
  Report Type: Spontaneous
  Country: ES (occurrence: ES)
  Receive Date: 20140409
  Receipt Date: 20140409
  Transmission Date: 20141212
  Serious: Yes (Other)
  Sender: FDA-Public Use
  Company Number: ES-TEVA-473381ISR

PATIENT
  Age: 71 Year
  Sex: Female

DRUGS (4)
  1. SIMVASTATINA RATIO 10 MG EFG FILM COATED TABLETS [Suspect]
     Indication: HYPERCHOLESTEROLAEMIA
     Dosage: 10 MILLIGRAM DAILY;
     Route: 048
     Dates: start: 20140215, end: 20140216
  2. ADOFEN 20 MG HARD CAPSULES [Concomitant]
     Route: 048
  3. FORTZAAR 100 MG/25 MG FILM-COATED TABLETS [Concomitant]
     Route: 048
  4. PLUSVENT 25MICROGRAMOS/125 MICROGRAMOS/SUSPENSION FOR INHALATION [Concomitant]
     Route: 055

REACTIONS (2)
  - Disorientation [Recovered/Resolved]
  - Confusional state [Recovered/Resolved]
